FAERS Safety Report 19483640 (Version 1)
Quarter: 2021Q3

REPORT INFORMATION
  Report Type: Spontaneous
  Country: US (occurrence: US)
  Receive Date: 20210701
  Receipt Date: 20210701
  Transmission Date: 20211014
  Serious: No
  Sender: FDA-Public Use
  Company Number: US-ROCHE-2657704

PATIENT
  Sex: Female
  Weight: 72.57 kg

DRUGS (14)
  1. XELJANZ XR [Suspect]
     Active Substance: TOFACITINIB CITRATE
     Indication: PSORIATIC ARTHROPATHY
     Route: 065
  2. LEXAPRO [Suspect]
     Active Substance: ESCITALOPRAM OXALATE
     Indication: PSORIATIC ARTHROPATHY
     Route: 065
  3. SPIRONOLACTONE. [Suspect]
     Active Substance: SPIRONOLACTONE
     Indication: PSORIATIC ARTHROPATHY
     Route: 065
  4. NAPROXEN. [Suspect]
     Active Substance: NAPROXEN
     Indication: PSORIATIC ARTHROPATHY
     Route: 065
  5. ALPHAGAN P [Suspect]
     Active Substance: BRIMONIDINE TARTRATE
     Indication: PSORIATIC ARTHROPATHY
     Route: 065
  6. DOXYCYCLINE MONOHYDRATE [Suspect]
     Active Substance: DOXYCYCLINE
     Indication: PSORIATIC ARTHROPATHY
     Route: 065
  7. CLONAZEPAM. [Suspect]
     Active Substance: CLONAZEPAM
     Indication: PSORIATIC ARTHROPATHY
     Route: 065
  8. HYDROXYCHLOROQUINE [Suspect]
     Active Substance: HYDROXYCHLOROQUINE
     Indication: PSORIATIC ARTHROPATHY
     Route: 065
  9. XANAX [Suspect]
     Active Substance: ALPRAZOLAM
     Indication: PSORIATIC ARTHROPATHY
     Route: 065
  10. LEVETIRACETAM. [Suspect]
     Active Substance: LEVETIRACETAM
     Indication: PSORIATIC ARTHROPATHY
     Route: 065
  11. PREGABALIN. [Suspect]
     Active Substance: PREGABALIN
     Indication: PSORIATIC ARTHROPATHY
     Route: 065
  12. RIVASTIGMINE. [Suspect]
     Active Substance: RIVASTIGMINE
     Indication: PSORIATIC ARTHROPATHY
     Route: 065
  13. METHOCARBAMOL. [Suspect]
     Active Substance: METHOCARBAMOL
     Indication: PSORIATIC ARTHROPATHY
     Route: 065
  14. TIZANIDINE. [Suspect]
     Active Substance: TIZANIDINE
     Indication: PSORIATIC ARTHROPATHY
     Route: 065

REACTIONS (5)
  - Visual impairment [Unknown]
  - Haemorrhage [Unknown]
  - Knee arthroplasty [Unknown]
  - Suspected COVID-19 [Unknown]
  - Joint dislocation [Unknown]
